FAERS Safety Report 4809821-4 (Version None)
Quarter: 2005Q4

REPORT INFORMATION
  Report Type: 
  Country: None (occurrence: None)
  Receive Date: 20051024
  Receipt Date: 20051024
  Transmission Date: 20060501
  Serious: Yes (Other)
  Sender: FDA-Public Use
  Company Number: None

PATIENT
  Sex: Male
  Weight: 86.4 kg

DRUGS (4)
  1. OXALIPLATIN [Suspect]
     Indication: COLON CANCER
     Dosage: SEE IMAGE
     Route: 042
     Dates: start: 20050610
  2. LEUCOVORIN [Suspect]
     Dosage: SEE IMAGE
     Route: 042
     Dates: start: 20050610
  3. FLUOROURACIL [Suspect]
     Dosage: SEE IMAGE
     Route: 040
     Dates: start: 20050610
  4. FLUOROURACIL [Suspect]
     Dosage: SEE IMAGE
     Route: 042
     Dates: start: 20050610

REACTIONS (6)
  - ASTHENIA [None]
  - BLOOD GLUCOSE INCREASED [None]
  - DEHYDRATION [None]
  - MUCOSAL INFLAMMATION [None]
  - TOOTH EXTRACTION [None]
  - WEIGHT DECREASED [None]
